FAERS Safety Report 6313448-5 (Version None)
Quarter: 2009Q3

REPORT INFORMATION
  Report Type: 
  Country: None (occurrence: None)
  Receive Date: 20090814
  Receipt Date: 20090814
  Transmission Date: 20100115
  Serious: Yes (Life-Threatening, Hospitalization, Disabling)
  Sender: FDA-Public Use
  Company Number: None

PATIENT
  Age: 22 Year
  Sex: Female
  Weight: 54.4316 kg

DRUGS (1)
  1. MACROBID [Suspect]
     Indication: URINARY TRACT INFECTION
     Dosage: 100MG AS NEEDED PO
     Route: 048
     Dates: start: 20090715, end: 20090812

REACTIONS (16)
  - ABDOMINAL PAIN [None]
  - ANAEMIA [None]
  - ARRHYTHMIA [None]
  - BLOOD GLUCOSE INCREASED [None]
  - BLOOD POTASSIUM DECREASED [None]
  - BRAIN NATRIURETIC PEPTIDE INCREASED [None]
  - DRUG HYPERSENSITIVITY [None]
  - FIBRIN D DIMER INCREASED [None]
  - HEADACHE [None]
  - HEART RATE DECREASED [None]
  - MYALGIA [None]
  - OCULAR HYPERAEMIA [None]
  - PAIN IN EXTREMITY [None]
  - PNEUMONIA PRIMARY ATYPICAL [None]
  - TACHYCARDIA [None]
  - WHEEZING [None]
